FAERS Safety Report 4961535-6 (Version None)
Quarter: 2006Q1

REPORT INFORMATION
  Report Type: 
  Country: None (occurrence: None)
  Receive Date: 20060329
  Receipt Date: 20060316
  Transmission Date: 20060701
  Serious: Yes (Disabling)
  Sender: FDA-Public Use
  Company Number: 2006037871

PATIENT
  Age: 79 Year
  Sex: Female
  Weight: 65 kg

DRUGS (6)
  1. VIBRAMYCIN [Suspect]
     Indication: EYE INFECTION
     Dosage: 200 MG (100 MG), ORAL
     Route: 048
     Dates: start: 20060112, end: 20060118
  2. CARVEDILOL [Concomitant]
  3. CHLOROTALIDONE [Concomitant]
  4. AMLODIPINE [Concomitant]
  5. CLOPIDOGREL [Concomitant]
  6. SIMVASTATIN [Concomitant]

REACTIONS (2)
  - ABDOMINAL DISTENSION [None]
  - DIARRHOEA [None]
